FAERS Safety Report 17219340 (Version 2)
Quarter: 2020Q1

REPORT INFORMATION
  Report Type: Spontaneous
  Country: US (occurrence: US)
  Receive Date: 20191231
  Receipt Date: 20200206
  Transmission Date: 20200409
  Serious: No
  Sender: FDA-Public Use
  Company Number: US-JNJFOC-20191240995

PATIENT
  Age: 49 Year
  Sex: Male

DRUGS (1)
  1. SPRAVATO [Suspect]
     Active Substance: ESKETAMINE
     Indication: PRODUCT USED FOR UNKNOWN INDICATION
     Dates: start: 201909

REACTIONS (16)
  - Product taste abnormal [Unknown]
  - Memory impairment [Unknown]
  - Vision blurred [Unknown]
  - Disorientation [Unknown]
  - Emotional distress [Unknown]
  - Anxiety [Unknown]
  - Feeling drunk [Unknown]
  - Anxiety [Unknown]
  - Dissociation [Unknown]
  - Fear [Unknown]
  - Time perception altered [Unknown]
  - Feeling abnormal [Unknown]
  - Dyspnoea [Unknown]
  - Visual impairment [Unknown]
  - Paranoia [Unknown]
  - Oral discomfort [Unknown]

NARRATIVE: CASE EVENT DATE: 2019
